FAERS Safety Report 4909886-5 (Version None)
Quarter: 2006Q1

REPORT INFORMATION
  Report Type: 
  Country: None (occurrence: None)
  Receive Date: 20060213
  Receipt Date: 20060125
  Transmission Date: 20060701
  Serious: Yes (Other)
  Sender: FDA-Public Use
  Company Number: PHBS2006JP01559

PATIENT
  Age: 67 Year
  Sex: Female

DRUGS (5)
  1. PREDNISOLONE [Suspect]
     Indication: PARANEOPLASTIC SYNDROME
     Route: 048
  2. CYCLOSPORINE [Suspect]
     Indication: PARANEOPLASTIC SYNDROME
     Route: 048
  3. PLASMAPHERESIS [Concomitant]
  4. RITUXIMAB [Concomitant]
  5. STEROIDS NOS [Concomitant]
     Dosage: PULSE THERAPY

REACTIONS (7)
  - DECREASED ACTIVITY [None]
  - DEHYDRATION [None]
  - DYSPNOEA [None]
  - HYPOXIA [None]
  - PULMONARY ARTERY THROMBOSIS [None]
  - TACHYCARDIA [None]
  - VASCULAR INSUFFICIENCY [None]
